FAERS Safety Report 10068169 (Version 7)
Quarter: 2015Q2

REPORT INFORMATION
  Report Type: Spontaneous
  Country: US (occurrence: US)
  Receive Date: 20140409
  Receipt Date: 20150420
  Transmission Date: 20150821
  Serious: Yes (Hospitalization)
  Sender: FDA-Public Use
  Company Number: US-PFIZER INC-2014096148

PATIENT
  Age: 67 Year
  Sex: Male
  Weight: 67 kg

DRUGS (3)
  1. PROTONIX [Concomitant]
     Active Substance: PANTOPRAZOLE SODIUM
     Dosage: UNK
  2. SUTENT [Suspect]
     Active Substance: SUNITINIB MALATE
     Indication: METASTATIC RENAL CELL CARCINOMA
     Dosage: 50 MG, DAILY (28 DAYS ON, 14 DAYS OFF)
     Dates: start: 20140402
  3. METOPROLOL [Concomitant]
     Active Substance: METOPROLOL
     Dosage: UNK
     Dates: end: 20140901

REACTIONS (24)
  - Photopsia [Recovered/Resolved]
  - Ageusia [Unknown]
  - Blister [Unknown]
  - Skin exfoliation [Unknown]
  - Inguinal hernia [Recovered/Resolved]
  - Fall [Recovered/Resolved]
  - Onychoclasis [Unknown]
  - Oral pain [Unknown]
  - Viral infection [Unknown]
  - Fatigue [Unknown]
  - Epistaxis [Unknown]
  - Cataract [Unknown]
  - Decreased appetite [Unknown]
  - Fluid retention [Unknown]
  - Joint swelling [Unknown]
  - Blood pressure increased [Unknown]
  - Blister infected [Unknown]
  - Visual impairment [Unknown]
  - Skin atrophy [Unknown]
  - Dysgeusia [Unknown]
  - Heart rate increased [Unknown]
  - Blood urine present [Unknown]
  - Pain [Unknown]
  - Palmar-plantar erythrodysaesthesia syndrome [Unknown]

NARRATIVE: CASE EVENT DATE: 2014
